FAERS Safety Report 23295171 (Version 1)
Quarter: 2023Q4

REPORT INFORMATION
  Report Type: Spontaneous
  Country: CN (occurrence: CN)
  Receive Date: 20231213
  Receipt Date: 20231213
  Transmission Date: 20240109
  Serious: Yes (Other)
  Sender: FDA-Public Use
  Company Number: CN-HALEON-CNCH2023APC061620

PATIENT

DRUGS (2)
  1. IBUPROFEN [Suspect]
     Active Substance: IBUPROFEN
     Indication: Intentional self-injury
     Dosage: 17 DF, QD
     Route: 048
     Dates: start: 20231105, end: 20231105
  2. ACETAMINOPHEN [Suspect]
     Active Substance: ACETAMINOPHEN
     Indication: Intentional self-injury
     Dosage: 6 DF, QD
     Route: 048
     Dates: start: 20231105, end: 20231105

REACTIONS (5)
  - Toxicity to various agents [Recovering/Resolving]
  - Gastritis [Recovering/Resolving]
  - Depression [Recovering/Resolving]
  - Gastric mucosal lesion [Recovering/Resolving]
  - Overdose [Unknown]

NARRATIVE: CASE EVENT DATE: 20231105
